FAERS Safety Report 8807792 (Version 3)
Quarter: 2022Q3

REPORT INFORMATION
  Report Type: Spontaneous
  Country: US (occurrence: None)
  Receive Date: 20120925
  Receipt Date: 20220929
  Transmission Date: 20221026
  Serious: Yes (Hospitalization, Other)
  Sender: FDA-Public Use
  Company Number: US-ROCHE-1135386

PATIENT
  Age: 48 Year
  Sex: Female

DRUGS (9)
  1. BONIVA [Suspect]
     Active Substance: IBANDRONATE SODIUM
     Indication: Osteoporosis
     Route: 042
     Dates: start: 1999, end: 2009
  2. BONIVA [Suspect]
     Active Substance: IBANDRONATE SODIUM
     Indication: Osteopenia
     Route: 042
     Dates: start: 2007, end: 2009
  3. BONIVA [Suspect]
     Active Substance: IBANDRONATE SODIUM
     Indication: Osteitis deformans
  4. FOSAMAX [Suspect]
     Active Substance: ALENDRONATE SODIUM
     Indication: Osteoporosis
     Route: 048
     Dates: start: 1999, end: 2009
  5. FOSAMAX [Suspect]
     Active Substance: ALENDRONATE SODIUM
     Indication: Osteopenia
     Route: 048
     Dates: start: 1999, end: 2004
  6. FOSAMAX [Suspect]
     Active Substance: ALENDRONATE SODIUM
     Indication: Osteitis deformans
  7. ACTONEL [Suspect]
     Active Substance: RISEDRONATE SODIUM
     Indication: Osteoporosis
     Route: 048
     Dates: start: 1999, end: 2009
  8. ACTONEL [Suspect]
     Active Substance: RISEDRONATE SODIUM
     Indication: Osteopenia
     Route: 048
     Dates: start: 2004, end: 2007
  9. ACTONEL [Suspect]
     Active Substance: RISEDRONATE SODIUM
     Indication: Osteitis deformans

REACTIONS (7)
  - Femur fracture [Unknown]
  - Emotional distress [Unknown]
  - Low turnover osteopathy [Unknown]
  - Anxiety [Unknown]
  - Foot fracture [Unknown]
  - Depression [Unknown]
  - Stress fracture [Unknown]

NARRATIVE: CASE EVENT DATE: 20041101
